FAERS Safety Report 9136577 (Version 1)
Quarter: 2013Q1

REPORT INFORMATION
  Report Type: Spontaneous
  Country: US (occurrence: US)
  Receive Date: 20130304
  Receipt Date: 20130304
  Transmission Date: 20140127
  Serious: No
  Sender: FDA-Public Use
  Company Number: US-ABBOTT-12P-163-0931768-00

PATIENT
  Sex: Male
  Weight: 108.96 kg

DRUGS (4)
  1. ANDROGEL 1% [Suspect]
     Indication: BLOOD TESTOSTERONE DECREASED
     Dosage: 2.5 GM PACKET
     Dates: start: 2012, end: 2012
  2. COUMADIN [Concomitant]
     Indication: ANTICOAGULANT THERAPY
     Dates: start: 2007
  3. MULTIVITAMIN [Concomitant]
     Indication: PRODUCT USED FOR UNKNOWN INDICATION
  4. CHOLESTEROL PILL [Concomitant]
     Indication: BLOOD CHOLESTEROL INCREASED

REACTIONS (2)
  - Dyspnoea [Recovered/Resolved]
  - Insomnia [Recovered/Resolved]
